FAERS Safety Report 16753678 (Version 2)
Quarter: 2019Q3

REPORT INFORMATION
  Report Type: Spontaneous
  Country: US (occurrence: US)
  Receive Date: 20190829
  Receipt Date: 20190905
  Transmission Date: 20191005
  Serious: No
  Sender: FDA-Public Use
  Company Number: US-TEVA-2019-US-1098627

PATIENT
  Sex: Female

DRUGS (2)
  1. ACTAVIS CLONAZEPAM [Suspect]
     Active Substance: CLONAZEPAM
     Indication: PANIC ATTACK
     Dosage: 2 MILLIGRAM DAILY; SPLITS THE 1 MG TABLETS IN HALF
     Dates: start: 2019
  2. ACTAVIS CLONAZEPAM [Suspect]
     Active Substance: CLONAZEPAM
     Indication: ANXIETY DISORDER

REACTIONS (3)
  - Product substitution issue [Unknown]
  - Therapeutic product effect decreased [Unknown]
  - Allergic reaction to excipient [Unknown]

NARRATIVE: CASE EVENT DATE: 201903
